FAERS Safety Report 8339336-0 (Version None)
Quarter: 2012Q2

REPORT INFORMATION
  Report Type: 
  Country: None (occurrence: None)
  Receive Date: 20120503
  Receipt Date: 20120416
  Transmission Date: 20120825
  Serious: Yes (Other)
  Sender: FDA-Public Use
  Company Number: NPIL/SEV/H/2012/36

PATIENT
  Age: 30 Year
  Sex: Female
  Weight: 70 kg

DRUGS (1)
  1. SEVOFLURANE [Suspect]
     Indication: NASAL SEPTUM DEVIATION
     Dosage: INHALATION
     Route: 055

REACTIONS (3)
  - MYOCLONUS [None]
  - FACE OEDEMA [None]
  - HYPERAEMIA [None]
